FAERS Safety Report 10225942 (Version 2)
Quarter: 2014Q2

REPORT INFORMATION
  Report Type: Spontaneous
  Country: US (occurrence: US)
  Receive Date: 20140609
  Receipt Date: 20140609
  Transmission Date: 20141212
  Serious: Yes (Hospitalization, Other)
  Sender: FDA-Public Use
  Company Number: US-ASTELLAS-2010US004354

PATIENT
  Age: 36 Year
  Sex: Male

DRUGS (7)
  1. PROGRAF [Suspect]
     Indication: RENAL TRANSPLANT
     Dosage: 0.5 MG, TWICE DAILY
     Route: 048
     Dates: start: 20020624
  2. RANEXA [Concomitant]
     Indication: ANGINA PECTORIS
     Route: 048
  3. CELLCEPT                           /01275102/ [Concomitant]
     Indication: RENAL TRANSPLANT
     Route: 048
     Dates: start: 20020624
  4. PREDNISONE [Concomitant]
     Indication: RENAL TRANSPLANT
     Route: 048
     Dates: start: 20020624
  5. LISINOPRIL [Concomitant]
     Indication: CARDIAC FAILURE CONGESTIVE
     Route: 048
     Dates: start: 20020708
  6. PLAVIX [Concomitant]
     Indication: BLOOD PRESSURE
     Route: 048
     Dates: start: 20020708
  7. ASPIRIN [Concomitant]
     Indication: INFLAMMATION
     Route: 048
     Dates: start: 20020708

REACTIONS (3)
  - Vascular graft [Recovering/Resolving]
  - Cardiac disorder [Not Recovered/Not Resolved]
  - Myocardial infarction [Unknown]
